FAERS Safety Report 7637496 (Version 14)
Quarter: 2014Q1

REPORT INFORMATION
  Report Type: Spontaneous
  Country: AU (occurrence: AU)
  Receive Date: 20101022
  Receipt Date: 20140131
  Transmission Date: 20141002
  Serious: Yes (Life-Threatening, Hospitalization, Other)
  Sender: FDA-Public Use
  Company Number: AU-JNJFOC-20100805745

PATIENT
  Age: 59 Year
  Sex: Male
  Weight: 129 kg

DRUGS (13)
  1. STELARA [Suspect]
     Indication: PSORIASIS
     Route: 058
     Dates: start: 20110419
  2. STELARA [Suspect]
     Indication: PSORIASIS
     Route: 058
     Dates: start: 20110124
  3. STELARA [Suspect]
     Indication: PSORIASIS
     Route: 058
     Dates: start: 20101107
  4. STELARA [Suspect]
     Indication: PSORIASIS
     Route: 058
     Dates: start: 20100814
  5. STELARA [Suspect]
     Indication: PSORIASIS
     Route: 058
     Dates: start: 20100717
  6. ANTIBIOTICS NOS [Concomitant]
  7. KINSON [Concomitant]
     Route: 065
  8. COVERSYL [Concomitant]
     Route: 065
  9. NOTEN [Concomitant]
     Route: 065
  10. WARFARIN [Concomitant]
     Route: 065
  11. LIPITOR [Concomitant]
     Route: 065
  12. ZOLOFT [Concomitant]
     Route: 065
  13. NEXIUM [Concomitant]
     Route: 065

REACTIONS (8)
  - Staphylococcal infection [Unknown]
  - Sepsis [Unknown]
  - Toe amputation [Unknown]
  - Pain in extremity [Recovering/Resolving]
  - Renal failure [Unknown]
  - Leg amputation [Unknown]
  - Drug dose omission [Unknown]
  - Incorrect product storage [Unknown]
